FAERS Safety Report 13402468 (Version 3)
Quarter: 2017Q3

REPORT INFORMATION
  Report Type: Report from Study
  Country: US (occurrence: US)
  Receive Date: 20170404
  Receipt Date: 20170828
  Transmission Date: 20171127
  Serious: Yes (Other)
  Sender: FDA-Public Use
  Company Number: PHEH2017US009793

PATIENT
  Age: 62 Year
  Sex: Female

DRUGS (2)
  1. PATADAY [Suspect]
     Active Substance: OLOPATADINE HYDROCHLORIDE
     Indication: PRODUCT USED FOR UNKNOWN INDICATION
     Dosage: UNK
     Route: 065
  2. GILENYA [Suspect]
     Active Substance: FINGOLIMOD HYDROCHLORIDE
     Indication: PRODUCT USED FOR UNKNOWN INDICATION
     Dosage: UNK
     Route: 065

REACTIONS (6)
  - Sneezing [Recovering/Resolving]
  - Productive cough [Recovering/Resolving]
  - Multiple sclerosis [Unknown]
  - Sinus disorder [Recovering/Resolving]
  - Vision blurred [Unknown]
  - Sinus pain [Recovering/Resolving]

NARRATIVE: CASE EVENT DATE: 20170317
